FAERS Safety Report 17740624 (Version 3)
Quarter: 2020Q2

REPORT INFORMATION
  Report Type: Report from Study
  Country: US (occurrence: US)
  Receive Date: 20200504
  Receipt Date: 20200630
  Transmission Date: 20200714
  Serious: Yes (Other)
  Sender: FDA-Public Use
  Company Number: US-B.I. PHARMACEUTICALS,INC./RIDGEFIELD-2019-BI-122242

PATIENT
  Sex: Female

DRUGS (1)
  1. OFEV [Suspect]
     Active Substance: NINTEDANIB
     Indication: IDIOPATHIC PULMONARY FIBROSIS
     Dosage: TAKE 1 CAPSULE (150MG) BY MOUTH TWO TIMES DAILY
     Route: 048

REACTIONS (14)
  - Nausea [Unknown]
  - Gastrooesophageal reflux disease [Unknown]
  - Temporomandibular joint syndrome [Not Recovered/Not Resolved]
  - Fatigue [Not Recovered/Not Resolved]
  - Cough [Not Recovered/Not Resolved]
  - Chromaturia [Unknown]
  - Diarrhoea [Not Recovered/Not Resolved]
  - Nephrolithiasis [Not Recovered/Not Resolved]
  - Decreased appetite [Unknown]
  - Weight decreased [Unknown]
  - Insomnia [Not Recovered/Not Resolved]
  - Rheumatoid arthritis [Unknown]
  - Urinary tract infection [Unknown]
  - Cystitis [Unknown]
